FAERS Safety Report 8116333-1 (Version None)
Quarter: 2012Q1

REPORT INFORMATION
  Report Type: 
  Country: None (occurrence: None)
  Receive Date: 20120206
  Receipt Date: 20120201
  Transmission Date: 20120608
  Serious: Yes (Death, Life-Threatening, Other)
  Sender: FDA-Public Use
  Company Number: US-GLAXOSMITHKLINE-A0964215A

PATIENT
  Age: 56 Year
  Sex: Male

DRUGS (6)
  1. DEXAMETHASONE [Concomitant]
  2. HYCAMTIN [Suspect]
     Indication: LUNG NEOPLASM MALIGNANT
     Route: 042
     Dates: start: 20120116, end: 20120116
  3. KEFLEX [Concomitant]
  4. LASIX [Concomitant]
  5. KLOR-CON [Concomitant]
  6. PROMETHAZINE [Concomitant]

REACTIONS (1)
  - LUNG NEOPLASM MALIGNANT [None]
